FAERS Safety Report 7932953-9 (Version None)
Quarter: 2011Q4

REPORT INFORMATION
  Report Type: 
  Country: None (occurrence: None)
  Receive Date: 20111122
  Receipt Date: 20111115
  Transmission Date: 20120403
  Serious: No
  Sender: FDA-Public Use
  Company Number: US-PFIZER INC-2011264648

PATIENT
  Sex: Female
  Weight: 51.701 kg

DRUGS (1)
  1. FLECTOR [Suspect]
     Indication: INFLAMMATION
     Dosage: UNK
     Route: 061
     Dates: start: 20111001, end: 20111001

REACTIONS (1)
  - DRUG INEFFECTIVE [None]
